FAERS Safety Report 12231011 (Version 1)
Quarter: 2016Q2

REPORT INFORMATION
  Report Type: Spontaneous
  Country: US (occurrence: US)
  Receive Date: 20160401
  Receipt Date: 20160401
  Transmission Date: 20160815
  Serious: No
  Sender: FDA-Public Use
  Company Number: US-WARNER CHILCOTT, LLC-1050099

PATIENT
  Sex: Female

DRUGS (2)
  1. ARMOUR THYROID [Concomitant]
     Active Substance: THYROID, PORCINE
  2. FEMRING [Suspect]
     Active Substance: ESTRADIOL ACETATE
     Indication: HORMONE LEVEL ABNORMAL
     Route: 067
     Dates: start: 2009

REACTIONS (4)
  - Drug ineffective for unapproved indication [Not Recovered/Not Resolved]
  - Migraine [Recovered/Resolved]
  - Product use issue [None]
  - Paralysis [Not Recovered/Not Resolved]
